FAERS Safety Report 15320735 (Version 1)
Quarter: 2018Q3

REPORT INFORMATION
  Report Type: Spontaneous
  Country: CN (occurrence: CN)
  Receive Date: 20180827
  Receipt Date: 20180827
  Transmission Date: 20181010
  Serious: Yes (Other)
  Sender: FDA-Public Use
  Company Number: PHHY2018CN077891

PATIENT
  Age: 41 Year
  Sex: Female

DRUGS (3)
  1. HYDROXYCHLOROQUINE [Suspect]
     Active Substance: HYDROXYCHLOROQUINE
     Indication: SYSTEMIC LUPUS ERYTHEMATOSUS
     Dosage: 200 MG, BID
     Route: 065
  2. PREDNISONE. [Concomitant]
     Active Substance: PREDNISONE
     Indication: SYSTEMIC LUPUS ERYTHEMATOSUS
     Dosage: 30 MG, QD
     Route: 065
  3. PREDNISONE. [Concomitant]
     Active Substance: PREDNISONE
     Dosage: 60 MG, QD
     Route: 065

REACTIONS (7)
  - Skin exfoliation [Recovering/Resolving]
  - Leukocytosis [Recovering/Resolving]
  - Alopecia [Recovering/Resolving]
  - Hyperkeratosis [Recovering/Resolving]
  - Dermatitis exfoliative generalised [Recovering/Resolving]
  - Erythema [Recovering/Resolving]
  - Erythrodermic psoriasis [Recovering/Resolving]
